FAERS Safety Report 26080924 (Version 1)
Quarter: 2025Q4

REPORT INFORMATION
  Report Type: Report from Study
  Country: CA (occurrence: CA)
  Receive Date: 20251124
  Receipt Date: 20251124
  Transmission Date: 20260118
  Serious: Yes (Other)
  Sender: IPSEN BIOPHARMACEUTICALS, INC.
  Company Number: CA-IPSEN Group, Research and Development-2025-24038

PATIENT
  Age: 55 Year
  Sex: Male

DRUGS (6)
  1. LANREOTIDE ACETATE [Suspect]
     Active Substance: LANREOTIDE ACETATE
     Indication: Gastroenteropancreatic neuroendocrine tumour disease
     Route: 058
     Dates: start: 20211028
  2. LANREOTIDE ACETATE [Suspect]
     Active Substance: LANREOTIDE ACETATE
     Route: 058
     Dates: start: 20250923
  3. diltiazem 240 mg PO DIE [Concomitant]
     Indication: Product used for unknown indication
     Route: 048
  4. Xeralto 20 mg PO DIE [Concomitant]
     Indication: Product used for unknown indication
     Route: 048
  5. Citalopram 40 mg PO DIE [Concomitant]
     Indication: Product used for unknown indication
     Route: 048
  6. Coversyl 8 mg PO DIE [Concomitant]
     Indication: Product used for unknown indication
     Route: 048

REACTIONS (5)
  - Blood potassium decreased [Recovering/Resolving]
  - Soft tissue mass [Not Recovered/Not Resolved]
  - Abdominal pain [Not Recovered/Not Resolved]
  - Abdominal pain [Not Recovered/Not Resolved]
  - Constipation [Not Recovered/Not Resolved]

NARRATIVE: CASE EVENT DATE: 20250101
